FAERS Safety Report 4998393-X (Version None)
Quarter: 2006Q2

REPORT INFORMATION
  Report Type: 
  Country: None (occurrence: None)
  Receive Date: 20060508
  Receipt Date: 20060426
  Transmission Date: 20061013
  Serious: Yes (Disabling)
  Sender: FDA-Public Use
  Company Number: 2006057119

PATIENT
  Sex: Male

DRUGS (2)
  1. XANAX [Suspect]
     Indication: CONSTIPATION
     Dosage: 1.5 MG (0.5 MG 3 IN 1 D) ORAL
     Route: 048
  2. PHENOBARBITAL TAB [Concomitant]

REACTIONS (3)
  - CONDITION AGGRAVATED [None]
  - EPILEPSY [None]
  - IMPAIRED WORK ABILITY [None]
